FAERS Safety Report 6141452-9 (Version None)
Quarter: 2009Q1

REPORT INFORMATION
  Report Type: 
  Country: None (occurrence: None)
  Receive Date: 20090331
  Receipt Date: 20090317
  Transmission Date: 20090719
  Serious: Yes (Death, Hospitalization)
  Sender: FDA-Public Use
  Company Number: RENA-1000341

PATIENT
  Age: 76 Year
  Sex: Female
  Weight: 60.7 kg

DRUGS (8)
  1. RENAGEL [Suspect]
     Indication: HYPERPHOSPHATAEMIA
     Dosage: 1.0 G, TID, ORAL
     Route: 048
     Dates: start: 20060101, end: 20081024
  2. WARFARIN SODIUM [Concomitant]
  3. GASTROM (ECABET MONOSODIUM) GRANULES [Concomitant]
  4. PARIET (RABEPRAZOLE SODIUM) TABLET [Concomitant]
  5. KOLANTYL (ALUMINIUM HYDROXIDE, DICYCLOVERINE HYDROCHLORIDE, MAGNESIUM [Concomitant]
  6. OPALMON (LIMAPROST) TABLET [Concomitant]
  7. SILECE (FLUNITRAZEPAM) [Concomitant]
  8. RISUMIC (AMEZINIUM METILSULFATE) TABLET [Concomitant]

REACTIONS (2)
  - CARDIAC DISORDER [None]
  - INTESTINAL PERFORATION [None]
